FAERS Safety Report 12900604 (Version 6)
Quarter: 2017Q1

REPORT INFORMATION
  Report Type: Report from Study
  Country: US (occurrence: US)
  Receive Date: 20161101
  Receipt Date: 20170320
  Transmission Date: 20170428
  Serious: Yes (Death, Hospitalization)
  Sender: FDA-Public Use
  Company Number: US-ACTELION-A-US2016-144534

PATIENT
  Age: 74 Year
  Sex: Female
  Weight: 52.61 kg

DRUGS (3)
  1. VELETRI [Suspect]
     Active Substance: EPOPROSTENOL
     Dosage: 13 NG/KG, PER MIN
     Route: 042
     Dates: start: 20161104
  2. VELETRI [Suspect]
     Active Substance: EPOPROSTENOL
     Indication: PULMONARY HYPERTENSION
     Dosage: 18 NG/KG, PER MIN
     Route: 042
  3. VELETRI [Suspect]
     Active Substance: EPOPROSTENOL
     Dosage: 10 NG/KG, PER MIN
     Route: 042

REACTIONS (31)
  - Abdominal pain [Unknown]
  - Dyspnoea [Unknown]
  - Constipation [Unknown]
  - Weight decreased [Unknown]
  - Dizziness [Unknown]
  - Gastrointestinal disorder [Unknown]
  - Myalgia [Unknown]
  - Skin ulcer [Unknown]
  - Dysgraphia [Unknown]
  - Faeces discoloured [Unknown]
  - Abdominal discomfort [Unknown]
  - Nausea [Unknown]
  - Device connection issue [Unknown]
  - Somnolence [Unknown]
  - Feeling abnormal [Unknown]
  - Dysgeusia [Unknown]
  - Death [Fatal]
  - Frequent bowel movements [Unknown]
  - Hypotension [Unknown]
  - Fatigue [Unknown]
  - Insomnia [Unknown]
  - Diarrhoea [Unknown]
  - Device leakage [Unknown]
  - Joint swelling [Unknown]
  - Decreased appetite [Unknown]
  - Condition aggravated [Unknown]
  - Pain in extremity [Unknown]
  - Pain in jaw [Unknown]
  - Headache [Unknown]
  - Panic reaction [Unknown]
  - Scleroderma [Unknown]

NARRATIVE: CASE EVENT DATE: 20161121
